FAERS Safety Report 7236559-9 (Version None)
Quarter: 2011Q1

REPORT INFORMATION
  Report Type: 
  Country: None (occurrence: None)
  Receive Date: 20110112
  Receipt Date: 20110103
  Transmission Date: 20110831
  Serious: Yes (Death, Hospitalization)
  Sender: FDA-Public Use
  Company Number: LEO-2011-00006

PATIENT
  Age: 49 Year
  Sex: Male
  Weight: 71 kg

DRUGS (5)
  1. EMEND [Suspect]
     Indication: PRODUCT USED FOR UNKNOWN INDICATION
     Dosage: DURING 5 DAYS AFTER COURSE (1 IN 1 D), ORAL
     Route: 048
     Dates: start: 20100703
  2. CARBOPLATIN [Suspect]
     Indication: NEOPLASM
     Dosage: 2 COURSES, INTRAVENOUS
     Route: 042
     Dates: start: 20100702, end: 20100723
  3. NEULASTA [Suspect]
     Indication: PRODUCT USED FOR UNKNOWN INDICATION
     Dosage: 2 DOSAGE FORMS (SOLUTION FOR INJECTION)
     Dates: start: 20100704, end: 20100725
  4. INNOHEP [Suspect]
     Indication: PRODUCT USED FOR UNKNOWN INDICATION
     Dosage: 12000 IU (12000 IU, 1 IN 1 D), SUBCUTANEOUS
     Route: 058
     Dates: start: 20100605, end: 20100824
  5. ALIMTA [Suspect]
     Indication: NEOPLASM
     Dosage: 2 COURSES (POWDER + SOLVENT FOR SOLN FOR INFUSION), INTRAVENOUS
     Route: 042
     Dates: start: 20100702, end: 20100723

REACTIONS (10)
  - ASTHENIA [None]
  - ABDOMINAL PAIN [None]
  - BACK PAIN [None]
  - NEOPLASM PROGRESSION [None]
  - METASTASES TO CENTRAL NERVOUS SYSTEM [None]
  - OFF LABEL USE [None]
  - OXYGEN SATURATION DECREASED [None]
  - RENAL FAILURE ACUTE [None]
  - RETROPERITONEAL LYMPHADENOPATHY [None]
  - WEIGHT DECREASED [None]
